FAERS Safety Report 11743016 (Version 8)
Quarter: 2022Q4

REPORT INFORMATION
  Report Type: Report from Study
  Country: CN (occurrence: CN)
  Receive Date: 20151116
  Receipt Date: 20221014
  Transmission Date: 20230113
  Serious: Yes (Death, Other)
  Sender: FDA-Public Use
  Company Number: CN-PFIZER INC-2015388713

PATIENT
  Age: 60 Year
  Sex: Female
  Weight: 80 kg

DRUGS (13)
  1. PALBOCICLIB [Suspect]
     Active Substance: PALBOCICLIB
     Indication: Breast cancer
     Dosage: 125 MG, UNK
     Route: 048
     Dates: start: 20150706, end: 20150726
  2. LETROZOLE [Suspect]
     Active Substance: LETROZOLE
     Indication: Breast cancer
     Dosage: 2.5 MG, UNK
     Route: 048
     Dates: start: 20150706, end: 20150830
  3. INSULIN HUMAN [Concomitant]
     Active Substance: INSULIN HUMAN
     Indication: Diabetes mellitus
     Dosage: 16 IU, 2X/DAY
     Route: 058
     Dates: start: 2009
  4. VALSARTAN [Concomitant]
     Active Substance: VALSARTAN
     Indication: Hypertension
     Dosage: 80 MG, 1X/DAY
     Route: 048
     Dates: start: 200706
  5. AMLODIPINE MALEATE [Concomitant]
     Active Substance: AMLODIPINE MALEATE
     Indication: Hypertension
     Dosage: 5 MG, 1X/DAY
     Route: 048
     Dates: start: 200706
  6. ALPROSTADIL [Concomitant]
     Active Substance: ALPROSTADIL
     Indication: Electrocardiogram QT prolonged
     Dosage: 2 BRANCHES, 1X/DAY
     Route: 041
     Dates: start: 20150803, end: 20150820
  7. ISOSORBIDE MONONITRATE [Concomitant]
     Active Substance: ISOSORBIDE MONONITRATE
     Indication: Electrocardiogram QT prolonged
     Dosage: 1 TABLET, 1X/DAY
     Route: 048
     Dates: start: 20150803, end: 20150902
  8. ACETYLSALICYLIC ACID W/ALUMINIUM/MAGNESIUM [Concomitant]
     Indication: Electrocardiogram QT prolonged
     Dosage: 1 TABLET, 1X/DAY
     Route: 048
     Dates: start: 20150803, end: 20150902
  9. IRBESARTAN AND HYDROCHLOROTHIAZIDE [Concomitant]
     Active Substance: HYDROCHLOROTHIAZIDE\IRBESARTAN
     Indication: Electrocardiogram QT prolonged
     Dosage: 1 TABLET, 1X/DAY
     Route: 048
     Dates: start: 20150803, end: 20150902
  10. ROSUVASTATIN CALCIUM [Concomitant]
     Active Substance: ROSUVASTATIN CALCIUM
     Indication: Electrocardiogram QT prolonged
     Dosage: 1 TABLET, 1X/DAY
     Route: 048
     Dates: start: 20150803, end: 20150902
  11. DIGOXIN [Concomitant]
     Active Substance: DIGOXIN
     Indication: Electrocardiogram QT prolonged
     Dosage: 1 TABLET, 1X/DAY
     Route: 048
     Dates: start: 20150803, end: 20150902
  12. HYDROCHLOROTHIAZIDE [Concomitant]
     Active Substance: HYDROCHLOROTHIAZIDE
     Indication: Electrocardiogram QT prolonged
     Dosage: 1 TABLET, 3X/DAY
     Route: 048
     Dates: start: 20150803, end: 20150902
  13. MAGNESIUM ASPARTATE\POTASSIUM ASPARTATE [Concomitant]
     Active Substance: MAGNESIUM ASPARTATE\POTASSIUM ASPARTATE
     Indication: Electrocardiogram QT prolonged
     Dosage: 1 TABLET, 3X/DAY
     Route: 048
     Dates: start: 20150803, end: 20150902

REACTIONS (1)
  - Death [Fatal]

NARRATIVE: CASE EVENT DATE: 20150904
